FAERS Safety Report 9407920 (Version 2)
Quarter: 2013Q4

REPORT INFORMATION
  Report Type: Spontaneous
  Country: US (occurrence: US)
  Receive Date: 20130718
  Receipt Date: 20131231
  Transmission Date: 20140711
  Serious: Yes (Hospitalization, Other)
  Sender: FDA-Public Use
  Company Number: US-PFIZER INC-2013209609

PATIENT
  Age: 67 Year
  Sex: Male
  Weight: 86.17 kg

DRUGS (4)
  1. LYRICA [Suspect]
     Indication: NEURALGIA
     Dosage: 150 MG, 1X/DAY
     Dates: start: 2013
  2. CELEBREX [Suspect]
     Indication: ARTHRALGIA
     Dosage: 200 MG, 1X/DAY
     Dates: start: 2013
  3. MEDROL [Suspect]
     Dosage: UNK
  4. CADUET [Suspect]
     Dosage: UNK

REACTIONS (5)
  - Musculoskeletal disorder [Unknown]
  - Prostate cancer [Unknown]
  - Limb discomfort [Unknown]
  - Gout [Unknown]
  - Neuropathy peripheral [Unknown]
